FAERS Safety Report 24029797 (Version 3)
Quarter: 2024Q3

REPORT INFORMATION
  Report Type: Spontaneous
  Country: IN (occurrence: IN)
  Receive Date: 20240628
  Receipt Date: 20240925
  Transmission Date: 20241017
  Serious: Yes (Death, Hospitalization)
  Sender: PFIZER
  Company Number: IN-PFIZER INC-PV202400084219

PATIENT
  Age: 35 Year
  Sex: Male

DRUGS (1)
  1. CRIZOTINIB [Suspect]
     Active Substance: CRIZOTINIB
     Dosage: 250 MG
     Route: 048
     Dates: start: 20240606

REACTIONS (4)
  - Death [Fatal]
  - Pain [Unknown]
  - Pharyngitis [Unknown]
  - Oral mucosal erythema [Unknown]
